FAERS Safety Report 9026467 (Version 1)
Quarter: 2012Q4

REPORT INFORMATION
  Report Type: Spontaneous
  Country: FR (occurrence: None)
  Receive Date: 20121211
  Receipt Date: 20121211
  Transmission Date: 20130627
  Serious: Yes (Life-Threatening, Hospitalization)
  Sender: FDA-Public Use
  Company Number: DSA_61138_2012

PATIENT
  Age: 54 Year
  Sex: Male

DRUGS (2)
  1. CO-RENITEC [Suspect]
     Indication: HYPERTENSION
     Dosage: (DF Oral)
(??/??/2010 to 10/25/2012)
     Route: 048
     Dates: start: 2010, end: 20121025
  2. SUTENT [Suspect]
     Indication: RENAL CANCER
     Dosage: (50 mg QD Oral)
(10/01/2012 to 10/25/2012)
     Route: 048
     Dates: start: 20121010, end: 20121025

REACTIONS (7)
  - Renal failure acute [None]
  - Haemolytic anaemia [None]
  - Thrombotic microangiopathy [None]
  - Pleural effusion [None]
  - Atelectasis [None]
  - Ascites [None]
  - Jaundice [None]
